FAERS Safety Report 14772799 (Version 2)
Quarter: 2018Q2

REPORT INFORMATION
  Report Type: Spontaneous
  Country: JP (occurrence: JP)
  Receive Date: 20180418
  Receipt Date: 20180501
  Transmission Date: 20180711
  Serious: Yes (Other)
  Sender: FDA-Public Use
  Company Number: JP-ASTRAZENECA-2018SE48152

PATIENT
  Age: 55 Year
  Sex: Male

DRUGS (1)
  1. FASLODEX [Suspect]
     Active Substance: FULVESTRANT
     Indication: BREAST CANCER MALE
     Dosage: DOSE UNKNOWN
     Route: 030
     Dates: start: 201612, end: 201708

REACTIONS (4)
  - Metastases to lymph nodes [Unknown]
  - Drug ineffective [Unknown]
  - Pleural effusion [Unknown]
  - Therapy cessation [Unknown]

NARRATIVE: CASE EVENT DATE: 2017
